FAERS Safety Report 7909897-1 (Version None)
Quarter: 2011Q4

REPORT INFORMATION
  Report Type: 
  Country: None (occurrence: None)
  Receive Date: 20111111
  Receipt Date: 20111024
  Transmission Date: 20120403
  Serious: Yes (Hospitalization)
  Sender: FDA-Public Use
  Company Number: GB-ROCHE-1007281

PATIENT

DRUGS (4)
  1. PREDNISOLONE [Concomitant]
     Indication: IMMUNOSUPPRESSION
  2. METHYLPREDNISOLONE [Concomitant]
     Indication: IMMUNOSUPPRESSION
  3. PREDNISOLONE [Concomitant]
  4. MABTHERA [Suspect]
     Indication: SYSTEMIC LUPUS ERYTHEMATOSUS
     Route: 065

REACTIONS (6)
  - INFECTION [None]
  - PSORIASIS [None]
  - SYSTEMIC LUPUS ERYTHEMATOSUS [None]
  - PNEUMOCYSTIS JIROVECI PNEUMONIA [None]
  - THYMOMA [None]
  - RENAL CELL CARCINOMA [None]
